FAERS Safety Report 9411999 (Version 2)
Quarter: 2013Q3

REPORT INFORMATION
  Report Type: Spontaneous
  Country: JP (occurrence: JP)
  Receive Date: 20130722
  Receipt Date: 20130812
  Transmission Date: 20140515
  Serious: Yes (Hospitalization, Other)
  Sender: FDA-Public Use
  Company Number: JP-JNJFOC-20130708056

PATIENT
  Age: 91 Year
  Sex: Female
  Weight: 42 kg

DRUGS (11)
  1. XARELTO [Suspect]
     Indication: CEREBROVASCULAR ACCIDENT PROPHYLAXIS
     Route: 048
     Dates: start: 20130727
  2. XARELTO [Suspect]
     Indication: CEREBROVASCULAR ACCIDENT PROPHYLAXIS
     Route: 048
     Dates: start: 20130712, end: 20130726
  3. XARELTO [Suspect]
     Indication: CEREBROVASCULAR ACCIDENT PROPHYLAXIS
     Route: 048
     Dates: start: 20130610, end: 20130708
  4. FAMOTIDINE [Suspect]
     Route: 048
  5. FAMOTIDINE [Suspect]
     Indication: HAEMORRHAGE PROPHYLAXIS
     Route: 048
     Dates: start: 20130614, end: 20130709
  6. DIOVAN [Concomitant]
     Route: 048
  7. AMLODIPINE [Concomitant]
     Indication: HYPERTENSION
     Route: 048
     Dates: start: 20130626
  8. BLOPRESS [Concomitant]
     Indication: HYPERTENSION
     Route: 048
     Dates: start: 20130608
  9. MIYA BM [Concomitant]
     Indication: DYSPEPSIA
     Route: 048
     Dates: start: 20130614
  10. LASIX [Concomitant]
     Indication: POLYURIA
     Route: 042
     Dates: start: 20130708
  11. AMINO ACIDS NOS W/CARBOHYD. NOS/ELECTROL. NOS [Concomitant]
     Indication: MEDICAL DIET
     Route: 041
     Dates: start: 20130712

REACTIONS (2)
  - Vomiting [Recovering/Resolving]
  - Cerebral infarction [Unknown]
